FAERS Safety Report 9553921 (Version 1)
Quarter: 2013Q3

REPORT INFORMATION
  Report Type: Spontaneous
  Country: US (occurrence: None)
  Receive Date: 20130913
  Receipt Date: 20130913
  Transmission Date: 20140515
  Serious: No
  Sender: FDA-Public Use
  Company Number: 1000045930

PATIENT
  Sex: Female

DRUGS (6)
  1. DALIRESP [Suspect]
     Indication: CHRONIC OBSTRUCTIVE PULMONARY DISEASE
     Dosage: 500 MCG (500 MCG, 1 IN 1 D), ORAL
     Route: 048
     Dates: start: 201201
  2. ADVAIR (SERETIDE) (SERETIDE) [Concomitant]
  3. SPIRIVA (TIOTROPIUM BROMIDE) (TIOTROPIUM BROMIDE) [Concomitant]
  4. SINGULAIR (MONTELUKAST SODIUM) (MONTELUKAST SODIUM) [Concomitant]
  5. ZYRTEC-D (CIRRUS) (CIRRUS) [Concomitant]
  6. VERAMYST (FLUTICASONE FUROATE) (FLUTICASONE FUROATE) [Concomitant]

REACTIONS (1)
  - Dyspnoea exertional [None]
